FAERS Safety Report 9118289 (Version 1)
Quarter: 2013Q1

REPORT INFORMATION
  Report Type: Spontaneous
  Country: US (occurrence: None)
  Receive Date: 20130221
  Receipt Date: 20130221
  Transmission Date: 20140127
  Serious: No
  Sender: FDA-Public Use
  Company Number: None

PATIENT
  Age: 85 Year
  Sex: Female
  Weight: 72.58 kg

DRUGS (6)
  1. DEXILANT [Suspect]
     Indication: MUSCLE SPASMS
     Dosage: 1-20 MIN. BEFORE MEALS SWALLOW
     Route: 048
     Dates: start: 20121024
  2. DEXILANT [Suspect]
     Indication: MASTICATION DISORDER
     Dosage: 1-20 MIN. BEFORE MEALS SWALLOW
     Route: 048
     Dates: start: 20121024
  3. LEVSIN [Suspect]
     Indication: MUSCLE SPASMS
     Dates: start: 20121024
  4. LEVSIN [Suspect]
     Indication: MASTICATION DISORDER
     Dates: start: 20121024
  5. PROTONIX [Concomitant]
  6. PEPTO BISMOL [Concomitant]

REACTIONS (1)
  - Vomiting [None]
